FAERS Safety Report 9262494 (Version 1)
Quarter: 2013Q2

REPORT INFORMATION
  Report Type: Spontaneous
  Country: US (occurrence: None)
  Receive Date: 20130426
  Receipt Date: 20130426
  Transmission Date: 20140414
  Serious: Yes (Other)
  Sender: FDA-Public Use
  Company Number: None

PATIENT
  Age: 64 Year
  Sex: Female
  Weight: 58.97 kg

DRUGS (2)
  1. INCIVEK [Suspect]
     Indication: HEPATITIS C VIRUS TEST POSITIVE
     Dosage: 2 TABLETS Q8H WITH FATTY SNACK 20GM PO
     Dates: start: 20120215, end: 20120523
  2. INCIVEK [Suspect]
     Indication: TREATMENT FAILURE
     Dosage: 2 TABLETS Q8H WITH FATTY SNACK 20GM PO
     Dates: start: 20120215, end: 20120523

REACTIONS (3)
  - Flatulence [None]
  - Abdominal pain upper [None]
  - Blood cholesterol increased [None]
